FAERS Safety Report 16639251 (Version 1)
Quarter: 2019Q3

REPORT INFORMATION
  Report Type: Spontaneous
  Country: FR (occurrence: FR)
  Receive Date: 20190726
  Receipt Date: 20190726
  Transmission Date: 20191004
  Serious: Yes (Other)
  Sender: FDA-Public Use
  Company Number: FR-CELGENEUS-FRA-20190709009

PATIENT
  Age: 52 Year
  Sex: Female
  Weight: 70 kg

DRUGS (2)
  1. ABRAXANE [Suspect]
     Active Substance: PACLITAXEL
     Indication: BREAST CANCER
     Dosage: 80 MILLIGRAM/SQ. METER
     Route: 041
     Dates: start: 20190401, end: 20190401
  2. LEVOTHYROX [Concomitant]
     Active Substance: LEVOTHYROXINE
     Indication: HYPOTHYROIDISM
     Dosage: 75 MICROGRAM
     Route: 048

REACTIONS (4)
  - Abdominal rigidity [Recovered/Resolved]
  - Cholestatic liver injury [Recovering/Resolving]
  - Vomiting [Recovered/Resolved]
  - Erythema [Recovered/Resolved]

NARRATIVE: CASE EVENT DATE: 20190401
